FAERS Safety Report 9109172 (Version 1)
Quarter: 2013Q1

REPORT INFORMATION
  Report Type: Report from Study
  Country: IE (occurrence: IE)
  Receive Date: 20130222
  Receipt Date: 20130222
  Transmission Date: 20140127
  Serious: Yes (Hospitalization)
  Sender: FDA-Public Use
  Company Number: IE-GLAXOSMITHKLINE-B0869920A

PATIENT
  Sex: Male

DRUGS (4)
  1. VOTRIENT [Suspect]
     Indication: RENAL CANCER
     Dosage: 800MG PER DAY
     Route: 048
     Dates: start: 20130115
  2. TRAMADOL [Concomitant]
  3. IMODIUM [Concomitant]
  4. TAMSULOSIN [Concomitant]

REACTIONS (2)
  - Hip fracture [Recovered/Resolved]
  - Pain [Unknown]
